FAERS Safety Report 7817856-2 (Version None)
Quarter: 2011Q4

REPORT INFORMATION
  Report Type: 
  Country: None (occurrence: None)
  Receive Date: 20111017
  Receipt Date: 20111013
  Transmission Date: 20120403
  Serious: Yes (Hospitalization, Other)
  Sender: FDA-Public Use
  Company Number: US-MERCK-1104USA01700

PATIENT
  Age: 64 Year
  Sex: Female

DRUGS (6)
  1. METFORMIN [Concomitant]
     Indication: DIABETES MELLITUS
     Route: 065
     Dates: start: 20020101, end: 20100101
  2. FOSAMAX [Suspect]
     Indication: OSTEOPOROSIS
     Route: 048
     Dates: start: 20070404, end: 20080122
  3. ACTOS [Concomitant]
     Indication: DIABETES MELLITUS
     Route: 065
     Dates: start: 20071101, end: 20090501
  4. PREDNISONE [Concomitant]
     Indication: RHEUMATOID ARTHRITIS
     Route: 065
     Dates: start: 20041201
  5. ALENDRONATE SODIUM [Suspect]
     Route: 048
     Dates: start: 20080221, end: 20080807
  6. LEFLUNOMIDE [Concomitant]
     Indication: RHEUMATOID ARTHRITIS
     Route: 065
     Dates: start: 20070401, end: 20081001

REACTIONS (9)
  - ARTHROPATHY [None]
  - BONE DISORDER [None]
  - ORAL INFECTION [None]
  - OSTEONECROSIS OF JAW [None]
  - OSTEOMYELITIS [None]
  - TOOTH EXTRACTION [None]
  - HYPERTENSION [None]
  - APPENDICITIS PERFORATED [None]
  - EDENTULOUS [None]
